FAERS Safety Report 7748339-6 (Version None)
Quarter: 2011Q3

REPORT INFORMATION
  Report Type: 
  Country: None (occurrence: None)
  Receive Date: 20110913
  Receipt Date: 20110907
  Transmission Date: 20111222
  Serious: Yes (Death, Other)
  Sender: FDA-Public Use
  Company Number: PHEH2008US09641

PATIENT
  Sex: Female

DRUGS (6)
  1. LASIX [Concomitant]
     Dosage: 20 MG, EVERY OTHER DAY
  2. PREVACID [Concomitant]
     Dosage: 30 MG, QD
  3. ZOMETA [Suspect]
  4. PROMETHAZINE [Concomitant]
  5. PREDNISONE [Concomitant]
     Route: 048
  6. POTASSIUM CHLORIDE [Concomitant]
     Dosage: 20 MG, EVERY OTHER DAY

REACTIONS (33)
  - NEPHROLITHIASIS [None]
  - HEPATIC MASS [None]
  - CHRONIC OBSTRUCTIVE PULMONARY DISEASE [None]
  - INFECTION [None]
  - METASTASES TO ABDOMINAL CAVITY [None]
  - DEATH [None]
  - ABDOMINAL PAIN [None]
  - PLEURAL EFFUSION [None]
  - OSTEOMYELITIS [None]
  - HYPERTENSION [None]
  - VOMITING [None]
  - PNEUMOTHORAX [None]
  - ATELECTASIS [None]
  - ABSCESS [None]
  - PYREXIA [None]
  - GASTROINTESTINAL HYPOMOTILITY [None]
  - LARGE INTESTINAL OBSTRUCTION [None]
  - HYDRONEPHROSIS [None]
  - METASTATIC NEOPLASM [None]
  - OSTEONECROSIS OF JAW [None]
  - POLLAKIURIA [None]
  - ARTHRITIS [None]
  - OVARIAN CANCER [None]
  - ASCITES [None]
  - INJURY [None]
  - OSTEOPENIA [None]
  - NEOPLASM MALIGNANT [None]
  - CONSTIPATION [None]
  - OEDEMA [None]
  - FACIAL PAIN [None]
  - PURULENT DISCHARGE [None]
  - MUCOSAL NECROSIS [None]
  - QUALITY OF LIFE DECREASED [None]
